FAERS Safety Report 16696267 (Version 2)
Quarter: 2019Q3

REPORT INFORMATION
  Report Type: Spontaneous
  Country: US (occurrence: US)
  Receive Date: 20190813
  Receipt Date: 20190913
  Transmission Date: 20191004
  Serious: Yes (Disabling, Other)
  Sender: FDA-Public Use
  Company Number: US-REGENERON PHARMACEUTICALS, INC.-2019-46327

PATIENT

DRUGS (2)
  1. EYLEA [Suspect]
     Active Substance: AFLIBERCEPT
     Indication: NEOVASCULAR AGE-RELATED MACULAR DEGENERATION
     Dosage: UNK, EVERY 2 MONTHS AND IN ALTERNATE EYES, OU
     Route: 031
     Dates: start: 201603, end: 20190703
  2. EYLEA [Suspect]
     Active Substance: AFLIBERCEPT
     Dosage: UNK, EVERY 2 MONTHS, LAST INJECTION IN THE RIGHT EYE
     Route: 031
     Dates: start: 20190703, end: 20190703

REACTIONS (5)
  - Cataract [Unknown]
  - Intraocular lens implant [Recovering/Resolving]
  - Blindness transient [Recovering/Resolving]
  - Eye swelling [Recovering/Resolving]
  - Vision blurred [Not Recovered/Not Resolved]

NARRATIVE: CASE EVENT DATE: 201901
